FAERS Safety Report 7629222-3 (Version None)
Quarter: 2011Q3

REPORT INFORMATION
  Report Type: 
  Country: None (occurrence: None)
  Receive Date: 20110722
  Receipt Date: 20110614
  Transmission Date: 20111222
  Serious: No
  Sender: FDA-Public Use
  Company Number: US-BAYER-2011-052199

PATIENT
  Age: 70 Year
  Sex: Male
  Weight: 104 kg

DRUGS (11)
  1. ALEVE (CAPLET) [Suspect]
     Indication: BACK PAIN
     Dosage: 440 MG, BID
     Route: 048
     Dates: start: 20110610, end: 20110613
  2. NIFEDIPINE [Concomitant]
  3. ALEVE (CAPLET) [Suspect]
     Dosage: 660 MG, BID
     Route: 048
  4. INSULIN [Concomitant]
  5. GEMFIBROZIL [Concomitant]
  6. PROZAC [Concomitant]
  7. NOVOLOG [Concomitant]
  8. LISINOPRIL [Concomitant]
  9. METFORMIN HCL [Concomitant]
  10. PRAVASTATIN [Concomitant]
  11. OMEPRAZOLE [Concomitant]

REACTIONS (1)
  - BACK PAIN [None]
